FAERS Safety Report 20469895 (Version 5)
Quarter: 2024Q1

REPORT INFORMATION
  Report Type: Spontaneous
  Country: US (occurrence: US)
  Receive Date: 20220214
  Receipt Date: 20240216
  Transmission Date: 20240409
  Serious: Yes (Other)
  Sender: FDA-Public Use
  Company Number: US-PFIZER INC-202101878851

PATIENT
  Age: 65 Year
  Sex: Female
  Weight: 127.89 kg

DRUGS (1)
  1. XELJANZ XR [Suspect]
     Active Substance: TOFACITINIB CITRATE
     Indication: Psoriatic arthropathy
     Dosage: 11 MG, 1X/DAY
     Dates: start: 202203

REACTIONS (9)
  - Nerve injury [Not Recovered/Not Resolved]
  - Back injury [Not Recovered/Not Resolved]
  - Skeletal injury [Not Recovered/Not Resolved]
  - Nervous system disorder [Not Recovered/Not Resolved]
  - Back disorder [Not Recovered/Not Resolved]
  - Spinal disorder [Not Recovered/Not Resolved]
  - Symptom recurrence [Unknown]
  - Pain [Not Recovered/Not Resolved]
  - Depressed mood [Unknown]
